FAERS Safety Report 24378177 (Version 2)
Quarter: 2024Q3

REPORT INFORMATION
  Report Type: Spontaneous
  Country: US (occurrence: US)
  Receive Date: 20240930
  Receipt Date: 20240930
  Transmission Date: 20241017
  Serious: Yes (Hospitalization)
  Sender: ROCHE
  Company Number: US-ROCHE-10000085775

PATIENT
  Age: 57 Year
  Sex: Male
  Weight: 111.13 kg

DRUGS (7)
  1. CELLCEPT [Suspect]
     Active Substance: MYCOPHENOLATE MOFETIL
     Indication: Renal transplant
     Dosage: 3 CAPSULES 2 X DAY
     Route: 048
     Dates: start: 201705, end: 2022
  2. TACROLIMUS [Concomitant]
     Active Substance: TACROLIMUS
     Route: 048
     Dates: start: 2017
  3. PREDNISONE [Concomitant]
     Active Substance: PREDNISONE
     Dosage: 2 TABLETS DAILY
     Route: 048
     Dates: start: 2022
  4. PREDNISONE [Concomitant]
     Active Substance: PREDNISONE
     Route: 048
     Dates: start: 2017, end: 202204
  5. IMATINIB MESYLATE [Concomitant]
     Active Substance: IMATINIB MESYLATE
     Route: 048
     Dates: start: 202308
  6. IMATINIB MESYLATE [Concomitant]
     Active Substance: IMATINIB MESYLATE
     Route: 048
     Dates: start: 202205, end: 202308
  7. CARVEDILOL [Concomitant]
     Active Substance: CARVEDILOL
     Indication: Blood pressure measurement
     Route: 048
     Dates: start: 2019

REACTIONS (11)
  - Pain in extremity [Unknown]
  - Abdominal pain upper [Unknown]
  - Renal cancer [Recovered/Resolved]
  - Oesophageal carcinoma [Unknown]
  - Gastric cancer [Recovered/Resolved]
  - Gastric bypass [Recovered/Resolved]
  - Neoplasm malignant [Recovering/Resolving]
  - Stomach mass [Recovering/Resolving]
  - Mass [Recovered/Resolved]
  - Hypertension [Unknown]
  - Renal disorder [Recovered/Resolved]

NARRATIVE: CASE EVENT DATE: 20190101
